FAERS Safety Report 6071680-2 (Version None)
Quarter: 2009Q1

REPORT INFORMATION
  Report Type: 
  Country: None (occurrence: None)
  Receive Date: 20090205
  Receipt Date: 20090202
  Transmission Date: 20090719
  Serious: Yes (Life-Threatening, Hospitalization)
  Sender: FDA-Public Use
  Company Number: 2008SP007794

PATIENT
  Age: 58 Year
  Sex: Female
  Weight: 42 kg

DRUGS (17)
  1. TEMODAL [Suspect]
     Indication: ANAPLASTIC ASTROCYTOMA
     Dosage: SEE IMAGE
     Route: 048
     Dates: start: 20070926, end: 20070930
  2. TEMODAL [Suspect]
     Indication: RECURRENT CANCER
     Dosage: SEE IMAGE
     Route: 048
     Dates: start: 20070926, end: 20070930
  3. TEMODAL [Suspect]
     Indication: ANAPLASTIC ASTROCYTOMA
     Dosage: SEE IMAGE
     Route: 048
     Dates: start: 20071024, end: 20071028
  4. TEMODAL [Suspect]
     Indication: RECURRENT CANCER
     Dosage: SEE IMAGE
     Route: 048
     Dates: start: 20071024, end: 20071028
  5. TEMODAL [Suspect]
     Indication: ANAPLASTIC ASTROCYTOMA
     Dosage: SEE IMAGE
     Route: 048
     Dates: start: 20071121, end: 20071125
  6. TEMODAL [Suspect]
     Indication: RECURRENT CANCER
     Dosage: SEE IMAGE
     Route: 048
     Dates: start: 20071121, end: 20071125
  7. TEMODAL [Suspect]
     Indication: ANAPLASTIC ASTROCYTOMA
     Dosage: SEE IMAGE
     Route: 048
     Dates: start: 20071219, end: 20071223
  8. TEMODAL [Suspect]
     Indication: RECURRENT CANCER
     Dosage: SEE IMAGE
     Route: 048
     Dates: start: 20071219, end: 20071223
  9. TEMODAL [Suspect]
     Indication: ANAPLASTIC ASTROCYTOMA
     Dosage: SEE IMAGE
     Route: 048
     Dates: start: 20080116, end: 20080120
  10. TEMODAL [Suspect]
     Indication: RECURRENT CANCER
     Dosage: SEE IMAGE
     Route: 048
     Dates: start: 20080116, end: 20080120
  11. TEMODAL [Suspect]
     Indication: ANAPLASTIC ASTROCYTOMA
     Dosage: SEE IMAGE
     Route: 048
     Dates: start: 20080213, end: 20080217
  12. TEMODAL [Suspect]
     Indication: RECURRENT CANCER
     Dosage: SEE IMAGE
     Route: 048
     Dates: start: 20080213, end: 20080217
  13. TEMODAL [Suspect]
     Indication: ANAPLASTIC ASTROCYTOMA
     Dosage: SEE IMAGE
     Route: 048
     Dates: start: 20080312, end: 20080316
  14. TEMODAL [Suspect]
     Indication: RECURRENT CANCER
     Dosage: SEE IMAGE
     Route: 048
     Dates: start: 20080312, end: 20080316
  15. DECADRON [Concomitant]
  16. MUCOSTA [Concomitant]
  17. DEPAS [Concomitant]

REACTIONS (6)
  - ACUTE RESPIRATORY FAILURE [None]
  - DEPRESSED LEVEL OF CONSCIOUSNESS [None]
  - IMMUNODEFICIENCY [None]
  - LYMPHOCYTE COUNT DECREASED [None]
  - PNEUMOCYSTIS JIROVECI PNEUMONIA [None]
  - PNEUMONIA PNEUMOCOCCAL [None]
